FAERS Safety Report 8799087 (Version 1)
Quarter: 2012Q4

REPORT INFORMATION
  Report Type: 
  Country: US (occurrence: US)
  Receive Date: 20120920
  Receipt Date: 20120920
  Transmission Date: 20130627
  Serious: No
  Sender: FDA-Public Use
  Company Number: US-ASTRAZENECA-2011SE62789

PATIENT
  Age: 733 Month
  Sex: Female

DRUGS (11)
  1. LISINOPRIL [Suspect]
     Route: 048
  2. LISINOPRIL [Suspect]
     Route: 048
  3. NORVASC [Suspect]
     Route: 065
     Dates: end: 2011
  4. PLAVIX [Suspect]
     Indication: MIGRAINE WITH AURA
     Route: 048
     Dates: start: 20110526
  5. PLAVIX [Suspect]
     Indication: TRANSIENT ISCHAEMIC ATTACK
     Route: 048
     Dates: start: 20110526
  6. HYDROCHLOROTHIAZIDE [Suspect]
     Route: 048
  7. HYDROCHLOROTHIAZIDE [Suspect]
     Route: 048
  8. HYDROCHLOROTHIAZIDE [Suspect]
     Route: 048
  9. HYDROCHLOROTHIAZIDE [Suspect]
     Route: 048
  10. METFORMIN [Concomitant]
  11. OTHER LIPID MODIFYIG AGENTS [Concomitant]

REACTIONS (5)
  - Epistaxis [Unknown]
  - Contusion [Unknown]
  - Gingival bleeding [Unknown]
  - Heart rate decreased [Unknown]
  - Weight decreased [Unknown]
